FAERS Safety Report 13183284 (Version 1)
Quarter: 2017Q1

REPORT INFORMATION
  Report Type: Spontaneous
  Country: US (occurrence: US)
  Receive Date: 20170203
  Receipt Date: 20170203
  Transmission Date: 20170428
  Serious: Yes (Hospitalization)
  Sender: FDA-Public Use
  Company Number: US-OTSUKA-2017_002150

PATIENT
  Sex: Female

DRUGS (1)
  1. SAMSCA [Suspect]
     Active Substance: TOLVAPTAN
     Indication: BLOOD SODIUM DECREASED
     Dosage: 7.5 MG, QD
     Route: 048

REACTIONS (5)
  - Clostridium difficile infection [Unknown]
  - General physical health deterioration [Unknown]
  - Incorrect drug administration duration [Unknown]
  - Underdose [Unknown]
  - Wrong technique in product usage process [Unknown]
